FAERS Safety Report 4698846-8 (Version None)
Quarter: 2005Q2

REPORT INFORMATION
  Report Type: 
  Country: None (occurrence: None)
  Receive Date: 20050623
  Receipt Date: 20050606
  Transmission Date: 20051028
  Serious: Yes (Hospitalization)
  Sender: FDA-Public Use
  Company Number: S05-FRA-02140-01

PATIENT
  Age: 91 Year
  Sex: Male

DRUGS (2)
  1. EBIXA (MEMANTINE) [Suspect]
     Dosage: 10 MG QD PO
     Route: 048
  2. PAROXETINE HYDROCHLORIDE [Suspect]
     Dosage: 20 MG QD PO
     Route: 048
     Dates: start: 20050404, end: 20050423

REACTIONS (11)
  - ANAEMIA MACROCYTIC [None]
  - BLOOD BILIRUBIN INCREASED [None]
  - BLOOD LACTATE DEHYDROGENASE INCREASED [None]
  - CD8 LYMPHOCYTES DECREASED [None]
  - COOMBS TEST POSITIVE [None]
  - DYSPNOEA [None]
  - HAEMOLYTIC ANAEMIA [None]
  - HAPTOGLOBIN DECREASED [None]
  - JAUNDICE [None]
  - LYMPHOPENIA [None]
  - MYCOPLASMA INFECTION [None]
